FAERS Safety Report 17070479 (Version 2)
Quarter: 2019Q4

REPORT INFORMATION
  Report Type: Report from Study
  Country: US (occurrence: US)
  Receive Date: 20191125
  Receipt Date: 20191204
  Transmission Date: 20200122
  Serious: Yes (Disabling, Other)
  Sender: FDA-Public Use
  Company Number: US-SA-2019SA324963

PATIENT
  Age: 49 Year
  Sex: Female

DRUGS (1)
  1. ALEMTUZUMAB [Suspect]
     Active Substance: ALEMTUZUMAB
     Indication: MULTIPLE SCLEROSIS
     Dosage: 12 MG, QD
     Route: 041
     Dates: start: 20191118, end: 20191119

REACTIONS (9)
  - Deafness unilateral [Recovered/Resolved]
  - Deafness neurosensory [Recovered/Resolved]
  - Condition aggravated [Recovering/Resolving]
  - Hypoaesthesia [Unknown]
  - Blood pressure increased [Not Recovered/Not Resolved]
  - Mydriasis [Not Recovered/Not Resolved]
  - Musculoskeletal pain [Recovering/Resolving]
  - Visual impairment [Not Recovered/Not Resolved]
  - Back pain [Recovering/Resolving]

NARRATIVE: CASE EVENT DATE: 2019
